FAERS Safety Report 9184329 (Version 1)
Quarter: 2013Q1

REPORT INFORMATION
  Report Type: Spontaneous
  Country: FI (occurrence: FI)
  Receive Date: 20130322
  Receipt Date: 20130322
  Transmission Date: 20140127
  Serious: Yes (Hospitalization)
  Sender: FDA-Public Use
  Company Number: FI-ABBOTT-13P-055-1065506-00

PATIENT
  Age: 23 Year
  Sex: Female

DRUGS (2)
  1. HUMIRA [Suspect]
  2. HUMIRA [Suspect]
     Indication: CROHN^S DISEASE
     Dates: start: 20090618

REACTIONS (4)
  - Pyoderma gangrenosum [Recovering/Resolving]
  - Inflammation [Recovering/Resolving]
  - Wound [Recovering/Resolving]
  - Injury [Unknown]
